FAERS Safety Report 14376518 (Version 4)
Quarter: 2018Q2

REPORT INFORMATION
  Report Type: Spontaneous
  Country: PT (occurrence: PT)
  Receive Date: 20180111
  Receipt Date: 20180426
  Transmission Date: 20180711
  Serious: Yes (Other)
  Sender: FDA-Public Use
  Company Number: PT-PFIZER INC-2018011103

PATIENT
  Age: 10 Month
  Sex: Male
  Weight: 10 kg

DRUGS (6)
  1. ROCURONIUM BROMIDE. [Suspect]
     Active Substance: ROCURONIUM BROMIDE
     Indication: INDUCTION OF ANAESTHESIA
     Dosage: 10 MG, UNK
  2. BRIDION [Suspect]
     Active Substance: SUGAMMADEX
     Dosage: 40 MG, UNK
  3. PROPOFOL. [Suspect]
     Active Substance: PROPOFOL
     Indication: INDUCTION OF ANAESTHESIA
     Dosage: 30 MG, UNK
  4. HYDROCORTISONE SODIUM SUCCINATE [Suspect]
     Active Substance: HYDROCORTISONE SODIUM SUCCINATE
     Indication: INDUCTION OF ANAESTHESIA
     Dosage: 20 MG, UNK
  5. PARACETAMOL [Suspect]
     Active Substance: ACETAMINOPHEN
     Indication: INDUCTION OF ANAESTHESIA
     Dosage: 75 MG, UNK
  6. BRIDION [Suspect]
     Active Substance: SUGAMMADEX
     Indication: INDUCTION OF ANAESTHESIA
     Dosage: 4 MG/KG, UNK

REACTIONS (2)
  - Off label use [Unknown]
  - Tetany [Unknown]
